FAERS Safety Report 14724211 (Version 2)
Quarter: 2018Q2

REPORT INFORMATION
  Report Type: Report from Study
  Country: GR (occurrence: GR)
  Receive Date: 20180405
  Receipt Date: 20180504
  Transmission Date: 20180711
  Serious: Yes (Hospitalization, Disabling)
  Sender: FDA-Public Use
  Company Number: GR-SHIRE-GR201811805

PATIENT

DRUGS (3)
  1. BLINDED PLACEBO [Suspect]
     Active Substance: INVESTIGATIONAL PRODUCT
     Indication: CHRONIC INFLAMMATORY DEMYELINATING POLYRADICULONEUROPATHY
     Dosage: 38 ML, 750 ML, 3X A WEEK
     Route: 058
     Dates: start: 20180308, end: 20180308
  2. BLINDED HUMAN IMMUNOGLOBULIN; HYALURONIDASE [Suspect]
     Active Substance: HUMAN IMMUNOGLOBULIN G\HYALURONIDASE RECOMBINANT HUMAN
     Indication: CHRONIC INFLAMMATORY DEMYELINATING POLYRADICULONEUROPATHY
     Dosage: 38 ML, 750 ML, 3X A WEEK
     Route: 058
     Dates: start: 20180308, end: 20180308
  3. BLINDED HYALURONIDASE [Suspect]
     Active Substance: HYALURONIDASE
     Indication: CHRONIC INFLAMMATORY DEMYELINATING POLYRADICULONEUROPATHY
     Dosage: 38 ML, 750 ML, 3X A WEEK
     Route: 058
     Dates: start: 20180308, end: 20180308

REACTIONS (1)
  - Condition aggravated [Recovered/Resolved]

NARRATIVE: CASE EVENT DATE: 20180320
